FAERS Safety Report 23444730 (Version 2)
Quarter: 2024Q1

REPORT INFORMATION
  Report Type: Spontaneous
  Country: US (occurrence: US)
  Receive Date: 20240125
  Receipt Date: 20240225
  Transmission Date: 20240409
  Serious: Yes (Other)
  Sender: FDA-Public Use
  Company Number: US-BAUSCHBL-2024BNL000872

PATIENT
  Age: 83 Year
  Sex: Male
  Weight: 92 kg

DRUGS (2)
  1. SOOTHE NIGHT TIME [Suspect]
     Active Substance: MINERAL OIL\PETROLATUM
     Indication: Eye lubrication therapy
     Dosage: AT NIGHT
     Route: 065
  2. PARAFFIN [Concomitant]
     Active Substance: PARAFFIN
     Indication: Dry skin

REACTIONS (4)
  - Blindness [Unknown]
  - Product delivery mechanism issue [Unknown]
  - Wrong technique in product usage process [Unknown]
  - Product use complaint [Unknown]
